FAERS Safety Report 21335207 (Version 1)
Quarter: 2022Q3

REPORT INFORMATION
  Report Type: Spontaneous
  Country: US (occurrence: US)
  Receive Date: 20220915
  Receipt Date: 20220915
  Transmission Date: 20221026
  Serious: Yes (Death, Other)
  Sender: FDA-Public Use
  Company Number: US-AMGEN-USASP2022157070

PATIENT

DRUGS (5)
  1. EPOETIN ALFA [Suspect]
     Active Substance: ERYTHROPOIETIN
     Indication: Acute myocardial infarction
     Dosage: UNK
     Route: 065
  2. CLOPIDOGREL [Concomitant]
     Active Substance: CLOPIDOGREL BISULFATE
  3. ASPIRIN [Concomitant]
     Active Substance: ASPIRIN
  4. HEPARIN [Concomitant]
     Active Substance: HEPARIN SODIUM
  5. Glycoprotein 100 [Concomitant]
     Dosage: UNK

REACTIONS (7)
  - Death [Fatal]
  - Vascular stent thrombosis [Unknown]
  - Cardiac ventricular thrombosis [Unknown]
  - Cardiac failure congestive [Unknown]
  - Adverse event [Unknown]
  - Myocardial infarction [Unknown]
  - Cerebrovascular accident [Unknown]
